FAERS Safety Report 8911347 (Version 2)
Quarter: 2012Q4

REPORT INFORMATION
  Report Type: 
  Country: SE (occurrence: SE)
  Receive Date: 20121115
  Receipt Date: 20121212
  Transmission Date: 20130627
  Serious: Yes (Hospitalization, Other)
  Sender: FDA-Public Use
  Company Number: SE-ABBOTT-12P-150-0996584-00

PATIENT
  Age: 41 None
  Sex: Female

DRUGS (16)
  1. NORVIR [Suspect]
     Indication: PRODUCT USED FOR UNKNOWN INDICATION
     Route: 048
     Dates: start: 20101124
  2. ENALAPRIL [Suspect]
  3. KIVEXA [Suspect]
     Indication: PRODUCT USED FOR UNKNOWN INDICATION
     Dosage: 600 mg/ 300 mg, 1 dosage form daily
     Route: 048
     Dates: start: 20091109
  4. FLUCONAZOL [Suspect]
     Indication: PRODUCT USED FOR UNKNOWN INDICATION
     Route: 048
     Dates: start: 20091214
  5. PREZISTA [Suspect]
     Indication: PRODUCT USED FOR UNKNOWN INDICATION
     Route: 048
     Dates: start: 20100407
  6. UNSPECIFIED INGREDIENT ANTIHYPERTENSIVE [Suspect]
     Indication: PRODUCT USED FOR UNKNOWN INDICATION
  7. UNKNOWN ANTIBIOTIC FROM ANOTHER COUNTRY [Suspect]
     Indication: PRODUCT USED FOR UNKNOWN INDICATION
  8. ACLASTA [Suspect]
     Indication: PRODUCT USED FOR UNKNOWN INDICATION
     Dosage: one dose only
     Route: 042
     Dates: start: 201206, end: 201206
  9. AMBISOME [Suspect]
     Indication: PRODUCT USED FOR UNKNOWN INDICATION
  10. BETAPRED [Concomitant]
  11. PREDNISOLONE [Concomitant]
     Indication: PRODUCT USED FOR UNKNOWN INDICATION
  12. PRIMPERAN [Concomitant]
     Indication: PRODUCT USED FOR UNKNOWN INDICATION
  13. PREDNISOLON [Concomitant]
     Indication: PRODUCT USED FOR UNKNOWN INDICATION
  14. DENTAN [Concomitant]
     Indication: PRODUCT USED FOR UNKNOWN INDICATION
  15. IMOVANE [Concomitant]
     Indication: PRODUCT USED FOR UNKNOWN INDICATION
  16. FLUCONAZOL [Concomitant]
     Indication: PRODUCT USED FOR UNKNOWN INDICATION
     Dosage: HIGH DOSE

REACTIONS (7)
  - Alanine aminotransferase increased [Unknown]
  - Transaminases increased [Recovering/Resolving]
  - Malaise [Unknown]
  - Alanine aminotransferase increased [Unknown]
  - Paraesthesia [Recovering/Resolving]
  - Partial seizures [Unknown]
  - Hepatitis A antibody positive [Unknown]
